FAERS Safety Report 6140472-8 (Version None)
Quarter: 2009Q1

REPORT INFORMATION
  Report Type: 
  Country: None (occurrence: None)
  Receive Date: 20090331
  Receipt Date: 20090317
  Transmission Date: 20090719
  Serious: Yes (Other)
  Sender: FDA-Public Use
  Company Number: 2009S1004691

PATIENT
  Age: 68 Year
  Sex: Female

DRUGS (8)
  1. METFORMIN HCL [Suspect]
  2. HYDROCHLOROTHIAZIDE [Suspect]
  3. HYDROCHLOROTHIAZIDE [Suspect]
  4. ASPIRIN [Concomitant]
  5. INEGY [Concomitant]
  6. PRILOSEC [Concomitant]
  7. NIFEDIPINE [Concomitant]
  8. INSULIN [Concomitant]

REACTIONS (7)
  - BLOOD GLUCOSE DECREASED [None]
  - CHILLS [None]
  - GASTROENTERITIS [None]
  - HAEMODIALYSIS [None]
  - METABOLIC ACIDOSIS [None]
  - RENAL FAILURE [None]
  - VOMITING [None]
